FAERS Safety Report 6434691-0 (Version None)
Quarter: 2009Q4

REPORT INFORMATION
  Report Type: 
  Country: None (occurrence: None)
  Receive Date: 20091109
  Receipt Date: 20091109
  Transmission Date: 20100525
  Serious: Yes (Life-Threatening, Hospitalization, Disabling, Other)
  Sender: FDA-Public Use
  Company Number: None

PATIENT
  Age: 74 Year
  Sex: Male
  Weight: 68.0396 kg

DRUGS (2)
  1. VICODIN ES [Suspect]
     Indication: HEAD INJURY
     Dosage: TABLET QID PO
     Route: 048
     Dates: start: 20070705, end: 20090228
  2. LEVAQUIN [Concomitant]

REACTIONS (5)
  - BLOOD DISORDER [None]
  - FEELING COLD [None]
  - INFECTION [None]
  - RESPIRATORY TRACT INFECTION [None]
  - SKIN DISORDER [None]
